FAERS Safety Report 20720798 (Version 2)
Quarter: 2022Q2

REPORT INFORMATION
  Report Type: Spontaneous
  Country: US (occurrence: None)
  Receive Date: 20220418
  Receipt Date: 20220510
  Transmission Date: 20220720
  Serious: Yes (Other)
  Sender: FDA-Public Use
  Company Number: US-ROCHE-3070991

PATIENT
  Sex: Female

DRUGS (2)
  1. OCREVUS [Suspect]
     Active Substance: OCRELIZUMAB
     Indication: Multiple sclerosis
     Dosage: STRENGTH 300 MG/10ML
     Route: 042
     Dates: start: 20200617
  2. OCREVUS [Suspect]
     Active Substance: OCRELIZUMAB
     Indication: Psoriatic arthropathy

REACTIONS (4)
  - Multiple sclerosis relapse [Unknown]
  - Arthralgia [Unknown]
  - Stress [Unknown]
  - Off label use [Unknown]
